FAERS Safety Report 4287202-2 (Version None)
Quarter: 2004Q1

REPORT INFORMATION
  Report Type: 
  Country: None (occurrence: None)
  Receive Date: 20040126
  Receipt Date: 20030912
  Transmission Date: 20041129
  Serious: No
  Sender: FDA-Public Use
  Company Number: USA030845359

PATIENT
  Age: 15 Year
  Sex: Female
  Weight: 37 kg

DRUGS (18)
  1. FORTEO [Suspect]
     Indication: OSTEOGENESIS IMPERFECTA
     Dates: start: 20030820
  2. AREDIA [Concomitant]
  3. IMIPRAMINE [Concomitant]
  4. IRON [Concomitant]
  5. DURAGESIC [Concomitant]
  6. POLYCITRA [Concomitant]
  7. ZITHROMAX [Concomitant]
  8. MULTIVITAMIN [Concomitant]
  9. MINERALS NOS [Concomitant]
  10. GLUCOSAMINE CHONDROITIN [Concomitant]
  11. VITAMIN C [Concomitant]
  12. VITAMIN D [Concomitant]
  13. NEURONTIN [Concomitant]
  14. CALCIUM [Concomitant]
  15. RHINOCORT [Concomitant]
  16. XENICAL [Concomitant]
  17. ZYRTEC-D 12 HOUR [Concomitant]
  18. SINGULAIR [Concomitant]

REACTIONS (8)
  - ABDOMINAL PAIN UPPER [None]
  - DYSGEUSIA [None]
  - INJECTION SITE BURNING [None]
  - INJECTION SITE STINGING [None]
  - SINUSITIS [None]
  - TREMOR [None]
  - VIRAL INFECTION [None]
  - VOMITING [None]
